FAERS Safety Report 4556570-6 (Version None)
Quarter: 2005Q1

REPORT INFORMATION
  Report Type: 
  Country: None (occurrence: None)
  Receive Date: 20050114
  Receipt Date: 20050112
  Transmission Date: 20050727
  Serious: Yes (Life-Threatening, Hospitalization)
  Sender: FDA-Public Use
  Company Number: TCI2004A04758

PATIENT
  Age: 72 Year
  Sex: Male

DRUGS (7)
  1. LEUPLIN SR FOR INJECTION KIT 11.25 (LEUPRORELIN ACETATE) (INJECTION) [Suspect]
     Indication: PROSTATE CANCER
     Dosage: 11.25 MG (11.25 MG, 1 IN 12 WK)
     Route: 058
     Dates: start: 20041125
  2. LANSOPRAZOLE [Suspect]
     Indication: GASTROENTERITIS HELICOBACTER
     Dosage: 60 MG (60 MG, 1 D)
     Route: 048
     Dates: start: 20041130, end: 20041205
  3. CLARITHROMYCIN [Suspect]
     Indication: GASTROENTERITIS HELICOBACTER
     Dosage: PER ORAL
     Route: 048
     Dates: start: 20041130, end: 20041205
  4. AMOXICILLIN [Suspect]
     Indication: GASTROENTERITIS HELICOBACTER
     Dosage: PER ORAL
     Route: 048
     Dates: start: 20041130, end: 20041205
  5. TROXIPIDE [Concomitant]
  6. FAMOTIDINE [Concomitant]
  7. METRONIDAZOLE [Concomitant]

REACTIONS (3)
  - GASTROENTERITIS HELICOBACTER [None]
  - HEPATIC FAILURE [None]
  - LIVER DISORDER [None]
